FAERS Safety Report 5259837-1 (Version None)
Quarter: 2007Q1

REPORT INFORMATION
  Report Type: 
  Country: None (occurrence: None)
  Receive Date: 20070309
  Receipt Date: 20070307
  Transmission Date: 20070707
  Serious: Yes (Disabling)
  Sender: FDA-Public Use
  Company Number: US-BRISTOL-MYERS SQUIBB COMPANY-13683008

PATIENT
  Age: 59 Year
  Sex: Female

DRUGS (5)
  1. ERBITUX [Suspect]
     Indication: COLON CANCER METASTATIC
     Route: 042
     Dates: start: 20070118, end: 20070125
  2. ATENOLOL [Concomitant]
  3. MULTI-VITAMIN [Concomitant]
  4. INSULIN GLARGINE [Concomitant]
  5. COMPAZINE [Concomitant]

REACTIONS (1)
  - CEREBROVASCULAR ACCIDENT [None]
